FAERS Safety Report 23220960 (Version 1)
Quarter: 2023Q4

REPORT INFORMATION
  Report Type: Spontaneous
  Country: AE (occurrence: AE)
  Receive Date: 20231123
  Receipt Date: 20231123
  Transmission Date: 20240109
  Serious: Yes (Hospitalization)
  Sender: FDA-Public Use
  Company Number: AE-JUBILANT CADISTA PHARMACEUTICALS-2023AE001480

PATIENT
  Age: 35 Year
  Sex: Male
  Weight: 132 kg

DRUGS (4)
  1. PANTOPRAZOLE SODIUM [Suspect]
     Active Substance: PANTOPRAZOLE SODIUM
     Indication: Gastrectomy
     Dosage: 40 MG, ONCE PER DAY
     Route: 065
  2. CALCIUM CARBONATE\CALCIUM LACTATE GLUCONATE [Concomitant]
     Active Substance: CALCIUM CARBONATE\CALCIUM LACTATE GLUCONATE
     Indication: Gastrectomy
     Dosage: 600 MG, WEEKLY
     Route: 065
  3. VITAMINS [Concomitant]
     Active Substance: VITAMINS
     Indication: Gastrectomy
     Dosage: UNK,  UNK
     Route: 048
  4. VITAMIN D NOS [Concomitant]
     Active Substance: VITAMIN D NOS
     Indication: Gastrectomy
     Dosage: 50000 IU, WEEKLY
     Route: 065

REACTIONS (2)
  - Rash erythematous [Recovered/Resolved]
  - Rash maculo-papular [Recovered/Resolved]
